FAERS Safety Report 5573542-3 (Version None)
Quarter: 2007Q4

REPORT INFORMATION
  Report Type: 
  Country: None (occurrence: None)
  Receive Date: 20071226
  Receipt Date: 20071214
  Transmission Date: 20080405
  Serious: Yes (Death, Hospitalization)
  Sender: FDA-Public Use
  Company Number: US-JNJFOC-20060700311

PATIENT
  Sex: Female
  Weight: 60.78 kg

DRUGS (3)
  1. REMICADE [Suspect]
     Indication: RHEUMATOID ARTHRITIS
  2. REMICADE [Suspect]
     Indication: CROHN'S DISEASE
  3. 6-MP [Concomitant]
     Dosage: PRIOR USE AND LESS THAN 3 MONTHS

REACTIONS (3)
  - DEATH [None]
  - TUBERCULOSIS [None]
  - WHITE BLOOD CELL COUNT DECREASED [None]
